FAERS Safety Report 7400021-0 (Version None)
Quarter: 2011Q2

REPORT INFORMATION
  Report Type: 
  Country: None (occurrence: None)
  Receive Date: 20110407
  Receipt Date: 20110328
  Transmission Date: 20111010
  Serious: Yes (Hospitalization, Other)
  Sender: FDA-Public Use
  Company Number: GB-JNJFOC-20110106238

PATIENT
  Sex: Male

DRUGS (5)
  1. RALTEGRAVIR [Suspect]
     Indication: HIV INFECTION
     Route: 065
  2. VALPROATE SODIUM [Concomitant]
     Indication: EPILEPSY
     Route: 048
  3. INTELENCE [Suspect]
     Indication: HIV INFECTION
     Route: 048
  4. RITONAVIR [Suspect]
     Indication: HIV INFECTION
     Route: 065
  5. PREZISTA [Suspect]
     Indication: HIV INFECTION
     Dosage: 2 X 400MG TABLETS
     Route: 048

REACTIONS (2)
  - TUBERCULOSIS [None]
  - METASTATIC NEOPLASM [None]
